FAERS Safety Report 19461285 (Version 1)
Quarter: 2021Q2

REPORT INFORMATION
  Report Type: Spontaneous
  Country: CN (occurrence: CN)
  Receive Date: 20210625
  Receipt Date: 20210625
  Transmission Date: 20210717
  Serious: Yes (Hospitalization)
  Sender: FDA-Public Use
  Company Number: CN-PFIZER INC-2021716814

PATIENT
  Age: 64 Year
  Sex: Male
  Weight: 76 kg

DRUGS (3)
  1. ACANTHOPANAX SENTICOSUS [Suspect]
     Active Substance: ELEUTHERO\HERBALS
     Indication: THERAPEUTIC PROCEDURE
     Dosage: 250 ML, 1X/DAY
     Route: 041
     Dates: start: 20210526, end: 20210531
  2. ATORVASTATIN CALCIUM. [Suspect]
     Active Substance: ATORVASTATIN CALCIUM
     Indication: CEREBRAL INFARCTION
     Dosage: 20 MG, 1X/DAY
     Route: 048
     Dates: start: 20210526, end: 20210531
  3. SHU XUE NING ZHU SHE YE [Suspect]
     Active Substance: GINKGO
     Indication: THERAPEUTIC PROCEDURE
     Dosage: 20 ML, 1X/DAY
     Route: 041
     Dates: start: 20210526, end: 20210531

REACTIONS (1)
  - Henoch-Schonlein purpura [Recovered/Resolved]

NARRATIVE: CASE EVENT DATE: 20210531
